FAERS Safety Report 11242636 (Version 1)
Quarter: 2015Q3

REPORT INFORMATION
  Report Type: Spontaneous
  Country: US (occurrence: None)
  Receive Date: 20150706
  Receipt Date: 20150706
  Transmission Date: 20151125
  Serious: No
  Sender: FDA-Public Use
  Company Number: None

PATIENT
  Age: 68 Year
  Sex: Female
  Weight: 72.58 kg

DRUGS (8)
  1. METFORMIN [Concomitant]
     Active Substance: METFORMIN HYDROCHLORIDE
  2. ONE-TOUCH BLOOD SUGAR TESTER [Concomitant]
  3. DIAZEPAM. [Concomitant]
     Active Substance: DIAZEPAM
  4. PRILOSEC [Concomitant]
     Active Substance: OMEPRAZOLE MAGNESIUM
  5. BUSPIRONE [Suspect]
     Active Substance: BUSPIRONE HYDROCHLORIDE
     Indication: ANXIETY
     Dosage: 1 TWICE DAILY TAKEN BY MOUTH
     Route: 048
     Dates: start: 20150702, end: 20150704
  6. MAXALT [Concomitant]
     Active Substance: RIZATRIPTAN BENZOATE
  7. VITAMIN D [Concomitant]
     Active Substance: CHOLECALCIFEROL
  8. FISH OIL WIT OMEGA 3 [Concomitant]

REACTIONS (2)
  - Dizziness [None]
  - Tinnitus [None]

NARRATIVE: CASE EVENT DATE: 20150702
